FAERS Safety Report 4525634-5 (Version None)
Quarter: 2004Q4

REPORT INFORMATION
  Report Type: 
  Country: None (occurrence: None)
  Receive Date: 20041213
  Receipt Date: 20041213
  Transmission Date: 20050328
  Serious: Yes (Other)
  Sender: FDA-Public Use
  Company Number: None

PATIENT
  Age: 32 Year
  Sex: Female
  Weight: 70.3075 kg

DRUGS (2)
  1. COMBIVIR [Suspect]
     Indication: ACCIDENTAL NEEDLE STICK
     Dosage: 300/150 MGM ONE Q 12 HOURS
     Dates: start: 20041117, end: 20041118
  2. CRIXIVAN [Suspect]
     Dosage: 800 MGM  EVERY 8 HOURS
     Dates: start: 20041117, end: 20041118

REACTIONS (4)
  - BLISTER [None]
  - GENITALIA EXTERNAL PAINFUL [None]
  - ORAL PAIN [None]
  - RASH GENERALISED [None]
